FAERS Safety Report 22114972 (Version 1)
Quarter: 2023Q1

REPORT INFORMATION
  Report Type: Spontaneous
  Country: ES (occurrence: ES)
  Receive Date: 20230320
  Receipt Date: 20230320
  Transmission Date: 20230418
  Serious: Yes (Other)
  Sender: FDA-Public Use
  Company Number: None

PATIENT
  Age: 49 Year
  Sex: Female
  Weight: 139 kg

DRUGS (1)
  1. JARDIANCE [Suspect]
     Active Substance: EMPAGLIFLOZIN
     Indication: Diabetes mellitus inadequate control
     Route: 048
     Dates: start: 20220113, end: 20220222

REACTIONS (2)
  - Dizziness [Recovered/Resolved]
  - Urinary tract infection fungal [Recovered/Resolved]

NARRATIVE: CASE EVENT DATE: 20220121
